FAERS Safety Report 7331486-0 (Version None)
Quarter: 2011Q1

REPORT INFORMATION
  Report Type: 
  Country: None (occurrence: None)
  Receive Date: 20110228
  Receipt Date: 20110228
  Transmission Date: 20110831
  Serious: Yes (Disabling)
  Sender: FDA-Public Use
  Company Number: None

PATIENT
  Age: 57 Year
  Sex: Female
  Weight: 65.7716 kg

DRUGS (2)
  1. METOCLOPRAMIDE HCL [Suspect]
     Indication: ABDOMINAL DISTENSION
     Dosage: 15MG 4TIMES/DAY ORAL
     Route: 048
     Dates: start: 20090101, end: 20090201
  2. METOCLOPRAMIDE HCL [Suspect]
     Indication: GASTROOESOPHAGEAL REFLUX DISEASE
     Dosage: 15MG 4TIMES/DAY ORAL
     Route: 048
     Dates: start: 20090101, end: 20090201

REACTIONS (4)
  - EYE MOVEMENT DISORDER [None]
  - TONGUE BITING [None]
  - DYSKINESIA [None]
  - DROOLING [None]
